FAERS Safety Report 9346039 (Version 1)
Quarter: 2013Q2

REPORT INFORMATION
  Report Type: Spontaneous
  Country: BE (occurrence: BE)
  Receive Date: 20130613
  Receipt Date: 20130613
  Transmission Date: 20140414
  Serious: No
  Sender: FDA-Public Use
  Company Number: BE-JNJFOC-20130522779

PATIENT
  Age: 57 Year
  Sex: Female

DRUGS (2)
  1. DUROGESIC [Suspect]
     Indication: PAIN
     Route: 062
  2. DUROGESIC [Suspect]
     Indication: PAIN
     Route: 062

REACTIONS (6)
  - Malaise [Unknown]
  - Pain [Unknown]
  - Pruritus [Unknown]
  - Expired drug administered [Unknown]
  - Headache [Unknown]
  - General physical health deterioration [Unknown]
